FAERS Safety Report 7637972-8 (Version None)
Quarter: 2011Q3

REPORT INFORMATION
  Report Type: 
  Country: None (occurrence: None)
  Receive Date: 20110720
  Receipt Date: 20110627
  Transmission Date: 20111222
  Serious: Yes (Hospitalization)
  Sender: FDA-Public Use
  Company Number: 2011PROUSA00437

PATIENT
  Age: 71 Year
  Sex: Male
  Weight: 103 kg

DRUGS (2)
  1. SOTALOL (SOTALOL) [Concomitant]
  2. PROVENGE [Suspect]
     Indication: PROSTATE CANCER METASTATIC
     Dosage: 250 ML, SINGLE, INTRAVENOUS
     Route: 042
     Dates: start: 20110609, end: 20110609

REACTIONS (1)
  - MYOCARDIAL INFARCTION [None]
